FAERS Safety Report 21514456 (Version 1)
Quarter: 2022Q4

REPORT INFORMATION
  Report Type: Spontaneous
  Country: US (occurrence: US)
  Receive Date: 20221027
  Receipt Date: 20221027
  Transmission Date: 20230112
  Serious: Yes (Other)
  Sender: FDA-Public Use
  Company Number: US-ABBVIE-4177562

PATIENT
  Sex: Female
  Weight: 73.481 kg

DRUGS (1)
  1. HUMIRA [Suspect]
     Active Substance: ADALIMUMAB
     Indication: Arthritis
     Route: 058

REACTIONS (4)
  - Carpal tunnel syndrome [Unknown]
  - Scar [Unknown]
  - Surgery [Unknown]
  - Feeling abnormal [Unknown]
